FAERS Safety Report 5063206-7 (Version None)
Quarter: 2006Q3

REPORT INFORMATION
  Report Type: 
  Country: None (occurrence: None)
  Receive Date: 20060703
  Receipt Date: 20060422
  Transmission Date: 20061208
  Serious: No
  Sender: FDA-Public Use
  Company Number: 2006PV012566

PATIENT
  Age: 77 Year
  Sex: Female
  Weight: 47.6277 kg

DRUGS (3)
  1. SYMLIN [Suspect]
     Indication: DIABETES MELLITUS INSULIN-DEPENDENT
     Dosage: 12 MCG;TID;SC
     Route: 058
     Dates: start: 20060421
  2. LANTUS [Concomitant]
  3. HUMALOG SSI [Concomitant]

REACTIONS (1)
  - BLOOD GLUCOSE INCREASED [None]
